FAERS Safety Report 4565653-6 (Version None)
Quarter: 2005Q1

REPORT INFORMATION
  Report Type: 
  Country: None (occurrence: None)
  Receive Date: 20050126
  Receipt Date: 20050113
  Transmission Date: 20050727
  Serious: Yes (Hospitalization)
  Sender: FDA-Public Use
  Company Number: 235899K04USA

PATIENT
  Age: 53 Year
  Sex: Female
  Weight: 58.9676 kg

DRUGS (10)
  1. REBIF [Suspect]
     Indication: MULTIPLE SCLEROSIS
     Dosage: 44 MCG, SUBCUTANEOUS
     Route: 058
     Dates: start: 20031001, end: 20040225
  2. ESTROGEN (ESTROGENS) [Concomitant]
  3. PRILOSEC [Concomitant]
  4. METHYLPREDNISOLONE [Concomitant]
  5. DITROPAN XL [Concomitant]
  6. REMINYL [Concomitant]
  7. EFFEXOR XR [Concomitant]
  8. OXYCONTIN [Concomitant]
  9. PERCOCET [Concomitant]
  10. PROAMATINE [Concomitant]

REACTIONS (11)
  - ASCITES [None]
  - CEREBRAL INFARCTION [None]
  - CONVULSION [None]
  - FEELING ABNORMAL [None]
  - GASTROINTESTINAL HAEMORRHAGE [None]
  - GENERAL PHYSICAL HEALTH DETERIORATION [None]
  - HYPERTENSION [None]
  - HYPONATRAEMIA [None]
  - MALAISE [None]
  - RECTAL HAEMORRHAGE [None]
  - THROMBOCYTOPENIA [None]
